FAERS Safety Report 5347922-5 (Version None)
Quarter: 2007Q2

REPORT INFORMATION
  Report Type: 
  Country: None (occurrence: None)
  Receive Date: 20070606
  Receipt Date: 20070601
  Transmission Date: 20071010
  Serious: Yes (Other)
  Sender: FDA-Public Use
  Company Number: A0653823A

PATIENT
  Age: 11 Year
  Sex: Male

DRUGS (2)
  1. LAMICTAL [Suspect]
     Indication: EPILEPSY
     Dosage: 475MG PER DAY
     Route: 048
     Dates: start: 20050601
  2. NO CONCURRENT MEDICATION [Concomitant]

REACTIONS (6)
  - CONVULSION [None]
  - DRY EYE [None]
  - EXCESSIVE EYE BLINKING [None]
  - EYE MOVEMENT DISORDER [None]
  - ILL-DEFINED DISORDER [None]
  - PRESCRIBED OVERDOSE [None]
